FAERS Safety Report 8774061 (Version 1)
Quarter: 2012Q4

REPORT INFORMATION
  Report Type: 
  Country: US (occurrence: US)
  Receive Date: 20120907
  Receipt Date: 20120907
  Transmission Date: 20130627
  Serious: No
  Sender: FDA-Public Use
  Company Number: US-ASTRAZENECA-2012SE57137

PATIENT
  Sex: Female

DRUGS (3)
  1. NEXIUM [Suspect]
     Indication: GASTROOESOPHAGEAL REFLUX DISEASE
     Route: 048
  2. DOXYCYCLINE [Suspect]
     Route: 065
  3. XANAX [Suspect]
     Route: 065

REACTIONS (2)
  - Hiatus hernia [Unknown]
  - Anxiety [Unknown]
